FAERS Safety Report 5929370-X (Version None)
Quarter: 2008Q4

REPORT INFORMATION
  Report Type: 
  Country: None (occurrence: None)
  Receive Date: 20081017
  Receipt Date: 20080207
  Transmission Date: 20090506
  Serious: Yes (Disabling)
  Sender: FDA-Public Use
  Company Number: TNZBE200800154

PATIENT
  Age: 36 Year
  Sex: Female
  Weight: 64 kg

DRUGS (2)
  1. INNOHEP [Suspect]
     Indication: CARDIAC VALVE PROSTHESIS USER
     Dosage: (10000 IU, 1 IN 1 D), SUBCUTANEOUS, (12000 IU, 1 IN 1 D), SUBCUTANEOUS
     Route: 058
     Dates: start: 20060312, end: 20060314
  2. INNOHEP [Suspect]
     Indication: CARDIAC VALVE PROSTHESIS USER
     Dosage: (10000 IU, 1 IN 1 D), SUBCUTANEOUS, (12000 IU, 1 IN 1 D), SUBCUTANEOUS
     Route: 058
     Dates: start: 20060315, end: 20060425

REACTIONS (5)
  - BLEEDING PERIPARTUM [None]
  - DRUG EXPOSURE DURING PREGNANCY [None]
  - ISCHAEMIC STROKE [None]
  - LABOUR INDUCTION [None]
  - PREGNANCY [None]
